FAERS Safety Report 24934580 (Version 1)
Quarter: 2025Q1

REPORT INFORMATION
  Report Type: Report from Study
  Country: CA (occurrence: CA)
  Receive Date: 20250206
  Receipt Date: 20250206
  Transmission Date: 20250409
  Serious: No
  Sender: EXELIXIS
  Company Number: CA-IPSEN Group, Research and Development-2024-19917

PATIENT
  Sex: Female

DRUGS (9)
  1. CABOMETYX [Suspect]
     Active Substance: CABOZANTINIB S-MALATE
     Indication: Renal cell carcinoma
     Dosage: 60 MG DAILY
     Route: 065
     Dates: start: 20240201
  2. CABOMETYX [Suspect]
     Active Substance: CABOZANTINIB S-MALATE
     Route: 065
  3. APIXABAN [Concomitant]
     Active Substance: APIXABAN
  4. LEVOTHYROXINE [Concomitant]
     Active Substance: LEVOTHYROXINE
  5. AMLODIPINE [Concomitant]
     Active Substance: AMLODIPINE BESYLATE
  6. HYDROMORPHONE [Concomitant]
     Active Substance: HYDROMORPHONE
  7. IRON [Concomitant]
     Active Substance: IRON
  8. INLYTA [Concomitant]
     Active Substance: AXITINIB
  9. KEYTRUDA [Concomitant]
     Active Substance: PEMBROLIZUMAB

REACTIONS (5)
  - Gait disturbance [Unknown]
  - Diarrhoea [Unknown]
  - Abdominal pain upper [Unknown]
  - Dry skin [Unknown]
  - Off label use [Unknown]
